FAERS Safety Report 19465505 (Version 1)
Quarter: 2021Q2

REPORT INFORMATION
  Report Type: Report from Study
  Country: US (occurrence: US)
  Receive Date: 20210624
  Receipt Date: 20210624
  Transmission Date: 20210717
  Serious: Yes (Hospitalization)
  Sender: FDA-Public Use
  Company Number: NVSC2021US136160

PATIENT
  Age: 82 Year
  Sex: Female

DRUGS (1)
  1. ENTRESTO [Suspect]
     Active Substance: SACUBITRIL\VALSARTAN
     Indication: PRODUCT USED FOR UNKNOWN INDICATION
     Dosage: UNK UNK, BID
     Route: 048

REACTIONS (8)
  - Memory impairment [Unknown]
  - Speech disorder [Unknown]
  - Hunger [Unknown]
  - Aphasia [Unknown]
  - Pneumonia [Unknown]
  - Communication disorder [Unknown]
  - Illness [Unknown]
  - Hypoacusis [Unknown]
